FAERS Safety Report 4834512-3 (Version None)
Quarter: 2005Q4

REPORT INFORMATION
  Report Type: 
  Country: None (occurrence: None)
  Receive Date: 20051122
  Receipt Date: 20050119
  Transmission Date: 20060501
  Serious: No
  Sender: FDA-Public Use
  Company Number: US-BRISTOL-MYERS SQUIBB COMPANY-12831384

PATIENT
  Age: 72 Year
  Sex: Female
  Weight: 59 kg

DRUGS (4)
  1. PRAVACHOL [Suspect]
     Indication: BLOOD CHOLESTEROL INCREASED
     Route: 048
     Dates: start: 20050112, end: 20050113
  2. TOPROL-XL [Concomitant]
  3. ECOTRIN [Concomitant]
  4. PLAVIX [Concomitant]

REACTIONS (3)
  - DIARRHOEA [None]
  - EAR PAIN [None]
  - HEADACHE [None]
